FAERS Safety Report 8407760 (Version 5)
Quarter: 2014Q1

REPORT INFORMATION
  Report Type: Report from Study
  Country: US (occurrence: US)
  Receive Date: 20120215
  Receipt Date: 20140203
  Transmission Date: 20141002
  Serious: Yes (Hospitalization)
  Sender: FDA-Public Use
  Company Number: PHEH2012US003556

PATIENT
  Sex: Female

DRUGS (14)
  1. DIOVAN HCT [Suspect]
     Dosage: 1 DF (320 MG VALSA/25 MG HCT), QD
  2. DIOVAN [Suspect]
     Dosage: 320 MG, UNK
     Route: 048
  3. DIOVAN [Suspect]
     Dosage: 180 UNK, UNK
  4. METOPROLOL TARTRATE [Concomitant]
     Dosage: UNK
  5. CLONIDINE [Concomitant]
     Dosage: 0.3 MG, BID
  6. ADALAT [Concomitant]
     Dosage: 90 MG, QD
  7. PRAVASTATIN [Concomitant]
     Dosage: UNK
  8. SPIRONOLACTONE [Concomitant]
     Dosage: 25 MG, UNK
  9. ALBUTEROL [Concomitant]
     Dosage: UNK
  10. MUCINEX [Concomitant]
     Dosage: UNK
  11. ALLEGRA [Concomitant]
     Dosage: UNK
  12. ACETYLSALICYLIC ACID [Concomitant]
     Dosage: UNK
  13. FLONASE [Concomitant]
     Dosage: UNK
  14. SERTRALINE [Concomitant]
     Dosage: UNK

REACTIONS (5)
  - Malaise [Unknown]
  - Respiratory disorder [Unknown]
  - Asthenia [Unknown]
  - Blood pressure inadequately controlled [Unknown]
  - Blood pressure increased [Unknown]
